FAERS Safety Report 18620639 (Version 1)
Quarter: 2020Q4

REPORT INFORMATION
  Report Type: Spontaneous
  Country: US (occurrence: US)
  Receive Date: 20201215
  Receipt Date: 20201215
  Transmission Date: 20210114
  Serious: Yes (Other)
  Sender: FDA-Public Use
  Company Number: US-PFIZER INC-2020492496

PATIENT
  Age: 62 Year
  Sex: Female

DRUGS (1)
  1. LYRICA [Suspect]
     Active Substance: PREGABALIN
     Dosage: 1 DF, DAILY
     Dates: start: 20201124

REACTIONS (8)
  - Swelling [Unknown]
  - Peripheral swelling [Unknown]
  - Breast swelling [Unknown]
  - Abdominal distension [Unknown]
  - Haematoma [Unknown]
  - Intentional product use issue [Unknown]
  - Pain [Unknown]
  - Mass [Unknown]

NARRATIVE: CASE EVENT DATE: 20201124
